FAERS Safety Report 6909132 (Version 4)
Quarter: 2020Q3

REPORT INFORMATION
  Report Type: Report from Study
  Country: US (occurrence: US)
  Receive Date: 20090213
  Receipt Date: 20090325
  Transmission Date: 20201104
  Serious: Yes (Death)
  Sender: FDA-Public Use
  Company Number: US-ROCHE-613544

PATIENT
  Sex: Female
  Weight: 99.5 kg

DRUGS (13)
  1. PRENATABS FA [Concomitant]
     Active Substance: .BETA.-CAROTENE\ASCORBIC ACID\CALCIUM CARBONATE\CHOLECALCIFEROL\CYANOCOBALAMIN\FERROUS FUMARATE\FOLIC ACID\NIACINAMIDE\POTASSIUM IODIDE\PYRIDOXINE HYDROCHLORIDE\RIBOFLAVIN\THIAMINE MONONITRATE\ZINC
     Dosage: TAKEN EVERY DAY.
  2. MOBIC [Concomitant]
     Active Substance: MELOXICAM
     Dosage: TAKEN AS NECESSARY
  3. IBANDRONIC ACID. [Suspect]
     Active Substance: IBANDRONIC ACID
     Indication: PRODUCT USED FOR UNKNOWN INDICATION
     Route: 065
     Dates: start: 20080102, end: 20080318
  4. LORAZEPAM. [Concomitant]
     Active Substance: LORAZEPAM
     Dosage: 2 MG AT NIGHT.
  5. NEXIUM [Concomitant]
     Active Substance: ESOMEPRAZOLE MAGNESIUM
     Dosage: TAKEN AS NECESSARY.
  6. ZOCOR [Concomitant]
     Active Substance: SIMVASTATIN
  7. CALCIUM [Concomitant]
     Active Substance: CALCIUM
  8. VICODIN [Concomitant]
     Active Substance: ACETAMINOPHEN\HYDROCODONE BITARTRATE
     Dosage: TAKEN 7.5/500 TWICE DAILY AS NECESSARY.
  9. PAXIL [Concomitant]
     Active Substance: PAROXETINE HYDROCHLORIDE
     Dosage: TAKEN 40 MG EVERYDAY.
  10. LYRICA [Concomitant]
     Active Substance: PREGABALIN
  11. LEVOTHYROXINE. [Concomitant]
     Active Substance: LEVOTHYROXINE
  12. DIOVAN [Concomitant]
     Active Substance: VALSARTAN
     Dosage: TAKEN 160/25 MG EVERYDAY.
  13. SINGULAIR [Concomitant]
     Active Substance: MONTELUKAST SODIUM

REACTIONS (2)
  - Pneumonia [Fatal]
  - Abdominal discomfort [Unknown]
